FAERS Safety Report 7948513-X (Version None)
Quarter: 2011Q4

REPORT INFORMATION
  Report Type: 
  Country: None (occurrence: None)
  Receive Date: 20111130
  Receipt Date: 20111121
  Transmission Date: 20120403
  Serious: Yes (Other)
  Sender: FDA-Public Use
  Company Number: JP-NAPPMUNDI-MAG-2011-0001787

PATIENT
  Age: 84 Year
  Sex: Male

DRUGS (4)
  1. BUPRENORPHINE [Suspect]
     Indication: OSTEOARTHRITIS
     Dosage: 5 MCG, Q1H
     Route: 062
     Dates: start: 20110930, end: 20111031
  2. PROCHLORPERAZINE [Concomitant]
  3. MOTILIUM [Concomitant]
     Indication: PROPHYLAXIS OF NAUSEA AND VOMITING
     Dosage: 30 MG, DAILY
     Route: 048
     Dates: start: 20110930
  4. PRIMPERAN TAB [Concomitant]

REACTIONS (2)
  - BRADYARRHYTHMIA [None]
  - NAUSEA [None]
